FAERS Safety Report 26158093 (Version 1)
Quarter: 2025Q4

REPORT INFORMATION
  Report Type: Spontaneous
  Country: EU (occurrence: EU)
  Receive Date: 20251215
  Receipt Date: 20251215
  Transmission Date: 20260117
  Serious: Yes (Hospitalization)
  Sender: MYLAN
  Company Number: None

PATIENT
  Age: 78 Year
  Sex: Male
  Weight: 69 kg

DRUGS (24)
  1. OXALIPLATIN [Suspect]
     Active Substance: OXALIPLATIN
     Indication: Oesophageal adenocarcinoma
     Dosage: 163 MILLIGRAM
     Dates: start: 20250430, end: 20250430
  2. OXALIPLATIN [Suspect]
     Active Substance: OXALIPLATIN
     Dosage: 163 MILLIGRAM
     Route: 042
     Dates: start: 20250430, end: 20250430
  3. OXALIPLATIN [Suspect]
     Active Substance: OXALIPLATIN
     Dosage: 163 MILLIGRAM
     Route: 042
     Dates: start: 20250430, end: 20250430
  4. OXALIPLATIN [Suspect]
     Active Substance: OXALIPLATIN
     Dosage: 163 MILLIGRAM
     Dates: start: 20250430, end: 20250430
  5. FLUOROURACIL [Suspect]
     Active Substance: FLUOROURACIL
     Indication: Oesophageal adenocarcinoma
     Dosage: 4600 MILLIGRAM
     Dates: start: 20250430, end: 20250430
  6. FLUOROURACIL [Suspect]
     Active Substance: FLUOROURACIL
     Dosage: 4600 MILLIGRAM
     Route: 042
     Dates: start: 20250430, end: 20250430
  7. FLUOROURACIL [Suspect]
     Active Substance: FLUOROURACIL
     Dosage: 4600 MILLIGRAM
     Route: 042
     Dates: start: 20250430, end: 20250430
  8. FLUOROURACIL [Suspect]
     Active Substance: FLUOROURACIL
     Dosage: 4600 MILLIGRAM
     Dates: start: 20250430, end: 20250430
  9. LEVOLEUCOVORIN CALCIUM [Concomitant]
     Active Substance: LEVOLEUCOVORIN CALCIUM
     Dosage: UNK
  10. LEVOLEUCOVORIN CALCIUM [Concomitant]
     Active Substance: LEVOLEUCOVORIN CALCIUM
     Dosage: UNK
     Route: 065
  11. LEVOLEUCOVORIN CALCIUM [Concomitant]
     Active Substance: LEVOLEUCOVORIN CALCIUM
     Dosage: UNK
     Route: 065
  12. LEVOLEUCOVORIN CALCIUM [Concomitant]
     Active Substance: LEVOLEUCOVORIN CALCIUM
     Dosage: UNK
  13. EMEND [Concomitant]
     Active Substance: APREPITANT
     Dosage: UNK
  14. EMEND [Concomitant]
     Active Substance: APREPITANT
     Dosage: UNK
     Route: 065
  15. EMEND [Concomitant]
     Active Substance: APREPITANT
     Dosage: UNK
     Route: 065
  16. EMEND [Concomitant]
     Active Substance: APREPITANT
     Dosage: UNK
  17. ONDANSETRON [Concomitant]
     Active Substance: ONDANSETRON
     Dosage: UNK
  18. ONDANSETRON [Concomitant]
     Active Substance: ONDANSETRON
     Dosage: UNK
     Route: 065
  19. ONDANSETRON [Concomitant]
     Active Substance: ONDANSETRON
     Dosage: UNK
     Route: 065
  20. ONDANSETRON [Concomitant]
     Active Substance: ONDANSETRON
     Dosage: UNK
  21. METHYLPREDNISOLONE [Concomitant]
     Active Substance: METHYLPREDNISOLONE
     Dosage: UNK
  22. METHYLPREDNISOLONE [Concomitant]
     Active Substance: METHYLPREDNISOLONE
     Dosage: UNK
     Route: 065
  23. METHYLPREDNISOLONE [Concomitant]
     Active Substance: METHYLPREDNISOLONE
     Dosage: UNK
     Route: 065
  24. METHYLPREDNISOLONE [Concomitant]
     Active Substance: METHYLPREDNISOLONE
     Dosage: UNK

REACTIONS (3)
  - General physical health deterioration [Recovered/Resolved]
  - Nausea [Recovered/Resolved]
  - Vomiting [Recovered/Resolved]

NARRATIVE: CASE EVENT DATE: 20250509
